FAERS Safety Report 10061323 (Version 2)
Quarter: 2014Q2

REPORT INFORMATION
  Report Type: Report from Study
  Country: DE (occurrence: DE)
  Receive Date: 20140407
  Receipt Date: 20140502
  Transmission Date: 20141212
  Serious: Yes (Life-Threatening, Hospitalization)
  Sender: FDA-Public Use
  Company Number: DE-ROCHE-1378020

PATIENT
  Age: 77 Year
  Sex: Male
  Weight: 78 kg

DRUGS (7)
  1. BEVACIZUMAB [Suspect]
     Indication: COLORECTAL CANCER METASTATIC
     Route: 042
  2. BEVACIZUMAB [Suspect]
     Route: 042
  3. BEVACIZUMAB [Suspect]
     Dosage: LAST DOSE PRIOR TO SERIOUS ADVERSE EVENT (SAE):07/SEP/2010
     Route: 042
  4. 5-FU [Suspect]
     Indication: COLORECTAL CANCER METASTATIC
     Dosage: LAST DOSE PRIOR TO SERIOUS ADVERSE EVENT (SAE) :07/SEP/2010
     Route: 042
  5. OXALIPLATIN [Suspect]
     Indication: COLORECTAL CANCER METASTATIC
     Dosage: LAST DOSE PRIOR TO SERIOUS ADVERSE EVENT (SAE) :07/SEP/2010
     Route: 042
     Dates: start: 20100427
  6. FOLINIC ACID [Suspect]
     Indication: COLORECTAL CANCER METASTATIC
     Dosage: LAST DOSE PRIOR TO SERIOUS ADVERSE EVENT (SAE) :07/SEP/2010
     Route: 042
     Dates: start: 20100427
  7. COAPROVEL [Concomitant]

REACTIONS (5)
  - Stomatitis [Recovered/Resolved]
  - Nausea [Recovered/Resolved]
  - Infection [Recovered/Resolved]
  - General physical health deterioration [Recovered/Resolved]
  - Fatigue [Recovered/Resolved]
